FAERS Safety Report 9060096 (Version 1)
Quarter: 2013Q1

REPORT INFORMATION
  Report Type: Spontaneous
  Country: US (occurrence: None)
  Receive Date: 20130207
  Receipt Date: 20130207
  Transmission Date: 20140127
  Serious: No
  Sender: FDA-Public Use
  Company Number: None

PATIENT
  Sex: Female
  Weight: 46.72 kg

DRUGS (1)
  1. PROLIA (INJECTION FORM) [Suspect]
     Indication: OSTEOPENIA
     Dosage: INJECTION EVERY 6 MOS.
     Dates: start: 20121206

REACTIONS (3)
  - Diarrhoea [None]
  - Pancreatitis [None]
  - Alopecia [None]
